FAERS Safety Report 9050315 (Version 1)
Quarter: 2013Q1

REPORT INFORMATION
  Report Type: Spontaneous
  Country: US (occurrence: US)
  Receive Date: 20130205
  Receipt Date: 20130205
  Transmission Date: 20140127
  Serious: Yes (Hospitalization)
  Sender: FDA-Public Use
  Company Number: PHEH2012US024447

PATIENT
  Age: 52 None
  Sex: Male
  Weight: 90.7 kg

DRUGS (7)
  1. GILENYA [Suspect]
     Indication: MULTIPLE SCLEROSIS
     Dosage: 0.5 MG, QD
     Route: 048
     Dates: start: 20120521
  2. BACLOFEN [Concomitant]
     Dosage: 20 MG, TID
     Route: 048
     Dates: start: 20120426
  3. BUPROPION HCL ER [Concomitant]
     Dosage: 150 MG, Q12H
     Route: 048
     Dates: start: 20120517
  4. LANSOPRAZOLE [Concomitant]
     Dosage: 30 MG, QD
     Route: 048
     Dates: start: 20120519
  5. MODAFINIL [Concomitant]
     Dosage: 100 MG, QD
     Route: 048
     Dates: start: 20121203
  6. NABUMETONE [Concomitant]
     Dosage: 500 MG, BID
     Route: 048
     Dates: start: 20121107
  7. TERAZOSIN [Concomitant]
     Dosage: 1 MG, QD AT BEDTIME
     Route: 048
     Dates: start: 20121211

REACTIONS (2)
  - Urinary retention [Recovering/Resolving]
  - Urinary incontinence [Unknown]
